FAERS Safety Report 11157613 (Version 1)
Quarter: 2015Q2

REPORT INFORMATION
  Report Type: Spontaneous
  Country: IT (occurrence: None)
  Receive Date: 20150601
  Receipt Date: 20150601
  Transmission Date: 20150821
  Serious: Yes (Other)
  Sender: FDA-Public Use
  Company Number: KAD201505-001328

PATIENT
  Age: 65 Year
  Sex: Female

DRUGS (3)
  1. RIBAVIRIN. [Suspect]
     Active Substance: RIBAVIRIN
  2. SOFOSBUVIR [Suspect]
     Active Substance: SOFOSBUVIR
  3. SIMEPREVIR [Suspect]
     Active Substance: SIMEPREVIR

REACTIONS (3)
  - Blood bilirubin increased [None]
  - Pruritus [None]
  - Chromaturia [None]
